FAERS Safety Report 7716767-0 (Version None)
Quarter: 2011Q3

REPORT INFORMATION
  Report Type: 
  Country: None (occurrence: None)
  Receive Date: 20110829
  Receipt Date: 20110818
  Transmission Date: 20111222
  Serious: Yes (Hospitalization, Other)
  Sender: FDA-Public Use
  Company Number: GB-ASTRAZENECA-2011SE49764

PATIENT
  Age: 35 Year
  Sex: Male
  Weight: 65 kg

DRUGS (14)
  1. DICLOFENAC SODIUM [Concomitant]
  2. BUDESONIDE [Suspect]
     Indication: CROHN'S DISEASE
  3. PREDNISOLONE [Concomitant]
  4. FOLIC ACID [Concomitant]
  5. MEBEVERINE HYDROCHLORIDE [Concomitant]
  6. PROPRANOLOL [Concomitant]
  7. ACETAMINOPHEN [Concomitant]
  8. TRAMADOL HCL [Concomitant]
  9. AMITRIPTYLINE HCL [Concomitant]
  10. HYOSCINE HBR HYT [Concomitant]
  11. MORPHINE [Concomitant]
  12. AZATHIOPRINE [Suspect]
     Indication: CROHN'S DISEASE
     Route: 048
     Dates: start: 20110607, end: 20110702
  13. CALCICHEW D3 [Concomitant]
  14. MESALAMINE [Concomitant]

REACTIONS (5)
  - VOMITING [None]
  - ABDOMINAL PAIN [None]
  - DECREASED APPETITE [None]
  - MALAISE [None]
  - PANCREATITIS ACUTE [None]
